FAERS Safety Report 10348000 (Version 1)
Quarter: 2014Q3

REPORT INFORMATION
  Report Type: Report from Study
  Country: BR (occurrence: BR)
  Receive Date: 20140729
  Receipt Date: 20140729
  Transmission Date: 20150326
  Serious: Yes (Other)
  Sender: FDA-Public Use
  Company Number: BR-ABBVIE-14K-020-1264828-00

PATIENT
  Sex: Female
  Weight: 43 kg

DRUGS (4)
  1. HUMIRA [Suspect]
     Active Substance: ADALIMUMAB
     Indication: CROHN^S DISEASE
     Dosage: STARTING DOSE
     Route: 058
     Dates: start: 201212, end: 201212
  2. HUMIRA [Suspect]
     Active Substance: ADALIMUMAB
     Route: 058
     Dates: start: 20140505
  3. AZATHIOPRINE. [Concomitant]
     Active Substance: AZATHIOPRINE
     Indication: IMMUNOSUPPRESSION
     Route: 048
     Dates: start: 20130101
  4. HUMIRA [Suspect]
     Active Substance: ADALIMUMAB
     Route: 058
     Dates: end: 20140414

REACTIONS (3)
  - Skin wound [Not Recovered/Not Resolved]
  - Female genital tract fistula [Recovered/Resolved]
  - Gait disturbance [Not Recovered/Not Resolved]
